FAERS Safety Report 25808607 (Version 1)
Quarter: 2025Q3

REPORT INFORMATION
  Report Type: Spontaneous
  Country: US (occurrence: None)
  Receive Date: 20250916
  Receipt Date: 20250916
  Transmission Date: 20251021
  Serious: Yes (unspecified)
  Sender: FDA-CTU
  Company Number: None

PATIENT
  Age: 35 Year
  Sex: Female

DRUGS (23)
  1. OFLOXACIN OTIC [Suspect]
     Active Substance: OFLOXACIN
     Indication: Ear infection
     Dosage: OTHER QUANTITY : 5 DROP(S);?FREQUENCY : EVERY 12 HOURS;?
     Route: 001
     Dates: start: 20250804, end: 20250806
  2. ketamine suppositories [Concomitant]
  3. liposomal glutathione 500mg [Concomitant]
  4. liposomal luteolin 55mg [Concomitant]
  5. liposomal vit d3 4000IU [Concomitant]
  6. liposomal pqq 20mg [Concomitant]
  7. liposomal ergothioneine 25mg [Concomitant]
  8. 3,250mcg of biotin [Concomitant]
  9. 15mg of b1 [Concomitant]
  10. 15mg of b2 [Concomitant]
  11. 17mg of b3 [Concomitant]
  12. 1,734mcg of folate [Concomitant]
  13. 300mg of rplus-ala [Concomitant]
  14. 12mg of astaxanthin [Concomitant]
  15. 400mg of chelated magnesium bisglycinate [Concomitant]
  16. 750mg of acetyl carnitine [Concomitant]
  17. 420mg of silymarin [Concomitant]
  18. 50mg of dimethylresveratrol [Concomitant]
  19. 475mg of burdock root [Concomitant]
  20. ubiquinol 60mg [Concomitant]
  21. liposomal curcumin 500mg [Concomitant]
  22. omega 3 500 mg [Concomitant]
  23. chondroitin 800mg [Concomitant]

REACTIONS (10)
  - Dysuria [None]
  - Skin burning sensation [None]
  - Skin tightness [None]
  - Myalgia [None]
  - Paraesthesia [None]
  - Hypoaesthesia [None]
  - Neuropathy peripheral [None]
  - Pruritus [None]
  - Tendon discomfort [None]
  - Gait disturbance [None]

NARRATIVE: CASE EVENT DATE: 20250806
